FAERS Safety Report 25088270 (Version 1)
Quarter: 2025Q1

REPORT INFORMATION
  Report Type: Report from Study
  Country: US (occurrence: US)
  Receive Date: 20250318
  Receipt Date: 20250318
  Transmission Date: 20250409
  Serious: Yes (Other)
  Sender: SANOFI AVENTIS
  Company Number: US-SA-2025SA076936

PATIENT
  Age: 79 Year
  Sex: Male
  Weight: 73.2 kg

DRUGS (2)
  1. ALEMTUZUMAB [Suspect]
     Active Substance: ALEMTUZUMAB
     Indication: T-cell prolymphocytic leukaemia
     Dosage: 30 MG (MONDAY, WEDNESDAY AND FRIDAY)
     Route: 058
     Dates: start: 20241202, end: 20250127
  2. RELEUKO [Suspect]
     Active Substance: FILGRASTIM-AYOW
     Route: 065

REACTIONS (1)
  - Neutropenia [Recovered/Resolved]

NARRATIVE: CASE EVENT DATE: 20250129
